FAERS Safety Report 17637199 (Version 4)
Quarter: 2021Q1

REPORT INFORMATION
  Report Type: Spontaneous
  Country: JP (occurrence: JP)
  Receive Date: 20200407
  Receipt Date: 20210326
  Transmission Date: 20210419
  Serious: Yes (Life-Threatening, Hospitalization, Other)
  Sender: FDA-Public Use
  Company Number: JP-009507513-2004JPN001504

PATIENT
  Age: 69 Year
  Sex: Male
  Weight: 58 kg

DRUGS (2)
  1. AMLODIPINE BESYLATE. [Suspect]
     Active Substance: AMLODIPINE BESYLATE
     Indication: HYPERTENSION
     Dosage: UNK
     Dates: end: 20190226
  2. KEYTRUDA [Suspect]
     Active Substance: PEMBROLIZUMAB
     Indication: LUNG ADENOCARCINOMA STAGE IV
     Dosage: 200 MILLIGRAM, Q3W; 7 COURSES OF ADMINISTRATION IN TOTAL
     Route: 042
     Dates: start: 20181015, end: 20190227

REACTIONS (9)
  - Nephrotic syndrome [Recovering/Resolving]
  - Necrotising fasciitis [Unknown]
  - Eczema asteatotic [Recovered/Resolved]
  - Renal disorder [Unknown]
  - Hypoalbuminaemia [Unknown]
  - Lymphangitis [Unknown]
  - Cellulitis [Unknown]
  - Skin infection [Unknown]
  - Hyperuricaemia [Unknown]

NARRATIVE: CASE EVENT DATE: 201812
